FAERS Safety Report 5815882-6 (Version None)
Quarter: 2008Q3

REPORT INFORMATION
  Report Type: 
  Country: None (occurrence: None)
  Receive Date: 20080721
  Receipt Date: 20080714
  Transmission Date: 20090109
  Serious: Yes (Death, Life-Threatening, Hospitalization, Other)
  Sender: FDA-Public Use
  Company Number: ES-BAYER-200818234GPV

PATIENT
  Age: 71 Year
  Sex: Male
  Weight: 69 kg

DRUGS (9)
  1. SORAFENIB [Suspect]
     Indication: NON-SMALL CELL LUNG CANCER
     Route: 048
     Dates: start: 20080509, end: 20080512
  2. CISPLATIN [Suspect]
     Indication: NON-SMALL CELL LUNG CANCER
     Route: 042
     Dates: start: 20080509, end: 20080509
  3. GEMCITABINE [Suspect]
     Indication: NON-SMALL CELL LUNG CANCER
     Route: 042
     Dates: start: 20080509, end: 20080509
  4. GEMCITABINE [Suspect]
     Route: 042
     Dates: start: 20080509, end: 20080509
  5. PLUSVENT [Concomitant]
     Indication: PROPHYLAXIS AGAINST BRONCHOSPASM
     Route: 055
     Dates: start: 20080416
  6. COMBIVENT [Concomitant]
     Indication: PROPHYLAXIS AGAINST BRONCHOSPASM
     Route: 055
     Dates: start: 20080416, end: 20080512
  7. SUTRIL [Concomitant]
     Indication: DIURETIC THERAPY
     Route: 048
     Dates: start: 20080416
  8. ESPIRONOLACTONA [Concomitant]
     Indication: DIURETIC THERAPY
     Route: 048
  9. SPIRIVA [Concomitant]
     Indication: PROPHYLAXIS AGAINST BRONCHOSPASM
     Route: 055

REACTIONS (3)
  - HYPOVOLAEMIC SHOCK [None]
  - PULMONARY EMBOLISM [None]
  - UPPER GASTROINTESTINAL HAEMORRHAGE [None]
